FAERS Safety Report 11792778 (Version 3)
Quarter: 2016Q1

REPORT INFORMATION
  Report Type: Report from Study
  Country: US (occurrence: US)
  Receive Date: 20151202
  Receipt Date: 20160304
  Transmission Date: 20160525
  Serious: Yes (Death, Hospitalization)
  Sender: FDA-Public Use
  Company Number: US-UCBSA-2015038119

PATIENT
  Age: 76 Year
  Sex: Male

DRUGS (1)
  1. CERTOLIZUMAB PEGOL [Suspect]
     Active Substance: CERTOLIZUMAB PEGOL
     Indication: CROHN^S DISEASE
     Dosage: 400 MG, EV 4 WEEKS
     Route: 058
     Dates: start: 20090402, end: 20151211

REACTIONS (2)
  - Death [Fatal]
  - Chronic obstructive pulmonary disease [Not Recovered/Not Resolved]

NARRATIVE: CASE EVENT DATE: 20151225
